FAERS Safety Report 9917917 (Version 5)
Quarter: 2015Q2

REPORT INFORMATION
  Report Type: Report from Study
  Country: US (occurrence: US)
  Receive Date: 20140222
  Receipt Date: 20150421
  Transmission Date: 20150821
  Serious: Yes (Other)
  Sender: FDA-Public Use
  Company Number: US-ROCHE-1146720

PATIENT

DRUGS (4)
  1. DACLATASVIR [Suspect]
     Active Substance: DACLATASVIR
     Indication: HEPATITIS C
     Route: 048
  2. RIBAVIRIN. [Suspect]
     Active Substance: RIBAVIRIN
     Indication: HEPATITIS C
     Dosage: 1000-2000 MG (1000 MG IN PATIENTS WITH A BODY WEIGHT OF {75 KG, AND 1200 MG IN PATIENTS WITH A BODY
     Route: 048
  3. SOFOSBUVIR [Suspect]
     Active Substance: SOFOSBUVIR
     Indication: HEPATITIS C
     Route: 048
  4. RIBAVIRIN. [Suspect]
     Active Substance: RIBAVIRIN
     Route: 048

REACTIONS (10)
  - Breast cancer [Unknown]
  - Mental disorder [Unknown]
  - Overdose [Unknown]
  - Chest pain [Unknown]
  - Blood phosphorus decreased [Unknown]
  - Anaemia [Unknown]
  - Anxiety [Unknown]
  - Cardiac disorder [Unknown]
  - Blood glucose increased [Unknown]
  - Hypokalaemia [Unknown]
